FAERS Safety Report 7166892-0 (Version None)
Quarter: 2010Q4

REPORT INFORMATION
  Report Type: 
  Country: None (occurrence: None)
  Receive Date: 20101213
  Receipt Date: 20101213
  Transmission Date: 20110411
  Serious: Yes (Hospitalization)
  Sender: FDA-Public Use
  Company Number: None

PATIENT
  Sex: Female
  Weight: 77.3 kg

DRUGS (8)
  1. THORAZINE [Suspect]
     Indication: PSYCHOTIC DISORDER
     Dosage: 300 MG PRN P.O.
     Route: 048
     Dates: start: 20101116, end: 20101124
  2. CLOZAPINE [Concomitant]
  3. TYLENOL [Concomitant]
  4. CYPROHEPTADINE HCL [Concomitant]
  5. GABAPENTIN [Concomitant]
  6. LITHIUM [Concomitant]
  7. OLANZIPINE [Concomitant]
  8. PROPRANOLOL [Concomitant]

REACTIONS (4)
  - GAIT DISTURBANCE [None]
  - INCORRECT DOSE ADMINISTERED [None]
  - SEDATION [None]
  - SPEECH DISORDER [None]
